FAERS Safety Report 6846863-1 (Version None)
Quarter: 2010Q3

REPORT INFORMATION
  Report Type: 
  Country: None (occurrence: None)
  Receive Date: 20100715
  Receipt Date: 20080218
  Transmission Date: 20110219
  Serious: Yes (Other)
  Sender: FDA-Public Use
  Company Number: US-PFIZER INC-2007080443

PATIENT
  Sex: Female
  Weight: 94.8 kg

DRUGS (1)
  1. CHANTIX [Suspect]

REACTIONS (4)
  - CEREBROVASCULAR ACCIDENT [None]
  - HEADACHE [None]
  - IMPAIRED WORK ABILITY [None]
  - TRANSIENT ISCHAEMIC ATTACK [None]
